FAERS Safety Report 7324691-0 (Version None)
Quarter: 2011Q1

REPORT INFORMATION
  Report Type: 
  Country: None (occurrence: None)
  Receive Date: 20110301
  Receipt Date: 20110223
  Transmission Date: 20110831
  Serious: Yes (Other)
  Sender: FDA-Public Use
  Company Number: CHNY2011JP00442

PATIENT
  Age: 83 Year
  Sex: Female

DRUGS (5)
  1. PURSENNID [Suspect]
     Indication: CONSTIPATION
     Dosage: UNK
     Route: 048
     Dates: start: 20100501, end: 20100601
  2. MAGNESIUM OXIDE [Concomitant]
     Dosage: UNK
     Dates: start: 20100501, end: 20100522
  3. SODIUM PICOSULFATE [Concomitant]
     Indication: CONSTIPATION
     Dosage: UNK
     Dates: start: 20100501, end: 20100603
  4. VENCOLL [Concomitant]
     Dosage: UNK
     Dates: start: 20100501, end: 20100524
  5. PANTETHINE [Concomitant]
     Dosage: UNK
     Dates: start: 20100501, end: 20100522

REACTIONS (2)
  - FLATULENCE [None]
  - DIARRHOEA [None]
